FAERS Safety Report 9894596 (Version 1)
Quarter: 2014Q1

REPORT INFORMATION
  Report Type: Spontaneous
  Country: IT (occurrence: IT)
  Receive Date: 20140213
  Receipt Date: 20140213
  Transmission Date: 20141002
  Serious: Yes (Hospitalization)
  Sender: FDA-Public Use
  Company Number: PHHY2014IT016950

PATIENT
  Age: 60 Year
  Sex: Male

DRUGS (4)
  1. 5-FLUOROURACIL [Suspect]
     Indication: RECTAL CANCER
     Dosage: 300 MG/M2, UNK
     Route: 040
  2. 5-FLUOROURACIL [Suspect]
     Dosage: 250 MG/M2, UNK
  3. OXALIPLATIN [Suspect]
     Indication: RECTAL CANCER
     Dosage: 130 MG/M2, UNK
     Route: 042
  4. FOLINIC ACID [Concomitant]
     Dosage: 20 MG/M2, UNK
     Route: 040

REACTIONS (13)
  - Acute lung injury [Recovered/Resolved]
  - Renal failure [Recovered/Resolved]
  - Lymphopenia [Recovered/Resolved]
  - Decreased appetite [Recovered/Resolved]
  - Diarrhoea [Recovered/Resolved]
  - Nausea [Recovered/Resolved]
  - Dehydration [Recovered/Resolved]
  - Diffuse alveolar damage [Recovered/Resolved]
  - Rales [Recovered/Resolved]
  - Dyspnoea [Recovered/Resolved]
  - Lung infiltration [Recovered/Resolved]
  - Asthenia [Recovered/Resolved]
  - Neutropenia [Recovered/Resolved]
